FAERS Safety Report 9563990 (Version 3)
Quarter: 2013Q4

REPORT INFORMATION
  Report Type: Spontaneous
  Country: GB (occurrence: GB)
  Receive Date: 20130928
  Receipt Date: 20131022
  Transmission Date: 20140711
  Serious: Yes (Other)
  Sender: FDA-Public Use
  Company Number: GB-ROCHE-1279704

PATIENT
  Age: 16 Year
  Sex: Male

DRUGS (6)
  1. RIVOTRIL [Suspect]
     Indication: EPILEPSY
     Route: 065
     Dates: start: 201307
  2. EPILIM [Concomitant]
     Indication: EPILEPSY
     Dosage: 200MG/5ML
     Route: 048
     Dates: start: 2005
  3. LEVETIRACETAM [Concomitant]
     Indication: EPILEPSY
     Dosage: 100MG/ML; 10ML/KG
     Route: 048
     Dates: start: 2006
  4. HYOSCINE PATCH [Concomitant]
     Indication: EPILEPSY
     Dosage: 1 MG/72 HRS
     Route: 062
     Dates: start: 2009
  5. DOMPERIDONE [Concomitant]
     Indication: EPILEPSY
     Dosage: 5 MG/ML
     Route: 048
     Dates: start: 200905
  6. LOSEC MUPS [Concomitant]
     Indication: EPILEPSY
     Route: 048
     Dates: start: 201004

REACTIONS (1)
  - Epilepsy [Unknown]
